FAERS Safety Report 8262883-7 (Version None)
Quarter: 2012Q2

REPORT INFORMATION
  Report Type: 
  Country: None (occurrence: None)
  Receive Date: 20120405
  Receipt Date: 20120326
  Transmission Date: 20120825
  Serious: Yes (Congenital Anomaly)
  Sender: FDA-Public Use
  Company Number: CA-GLAXOSMITHKLINE-A0972074A

PATIENT

DRUGS (22)
  1. ACETAMINOPHEN [Suspect]
  2. PANTOPRAZOLE [Suspect]
  3. METOCLOPRAMIDE [Suspect]
     Indication: HYPEREMESIS GRAVIDARUM
     Route: 064
  4. DOCUSATE SODIUM [Suspect]
  5. CLOTRIMAZOLE [Suspect]
  6. HYDROMORPHONE HCL [Suspect]
  7. HYDROXYZINE [Suspect]
     Indication: HYPEREMESIS GRAVIDARUM
     Dosage: 25MG FOUR TIMES PER DAY
     Route: 064
  8. DOMPERIDONE [Suspect]
  9. CITALOPRAM HYDROBROMIDE [Suspect]
  10. INDOMETHACIN [Suspect]
  11. OMEPRAZOLE [Suspect]
  12. MULTI-VITAMINS [Suspect]
     Indication: HYPEREMESIS GRAVIDARUM
     Route: 064
  13. GLYCERIN [Suspect]
  14. DIPHENHYDRAMINE HCL [Suspect]
     Indication: HYPEREMESIS GRAVIDARUM
     Dosage: 50MG FOUR TIMES PER DAY
     Route: 064
  15. THIAMINE HCL [Suspect]
     Indication: HYPEREMESIS GRAVIDARUM
     Route: 064
  16. CODEINE SULFATE [Suspect]
  17. ONDANSETRON [Suspect]
     Indication: HYPEREMESIS GRAVIDARUM
     Route: 064
  18. GINGER [Suspect]
  19. LACTULOSE [Suspect]
  20. PREDNISONE TAB [Suspect]
  21. RANITIDINE [Suspect]
     Route: 064
  22. METHYLPREDNISOLONE [Suspect]

REACTIONS (2)
  - FOETAL EXPOSURE DURING PREGNANCY [None]
  - CONGENITAL ANOMALY [None]
